FAERS Safety Report 4556435-X (Version None)
Quarter: 2005Q1

REPORT INFORMATION
  Report Type: 
  Country: None (occurrence: None)
  Receive Date: 20050114
  Receipt Date: 20050105
  Transmission Date: 20050727
  Serious: Yes (Hospitalization)
  Sender: FDA-Public Use
  Company Number: GXBR2005US00441

PATIENT
  Age: 68 Year
  Sex: Female

DRUGS (8)
  1. TRAZODONE HCL [Suspect]
     Indication: SLEEP DISORDER
     Dosage: 75 MG, QD, ORAL
     Route: 048
     Dates: start: 20040820
  2. AMITRIPTYLINE HCL TAB [Suspect]
     Indication: INSOMNIA
     Dosage: 25 MG, QD, ORAL
     Route: 048
  3. DURAGESIC [Suspect]
     Indication: PAIN
     Dosage: 75 UG, Q72H (75 UG/HR), TRANSDERMAL
     Route: 062
     Dates: start: 20040301
  4. DIAZEPAM [Concomitant]
  5. VICODIN [Concomitant]
  6. DETROL [Concomitant]
  7. FLORINEF [Concomitant]
  8. EFFEXOR [Concomitant]

REACTIONS (4)
  - FALL [None]
  - FOOT FRACTURE [None]
  - MEDICATION ERROR [None]
  - PNEUMONIA [None]
